FAERS Safety Report 25890006 (Version 1)
Quarter: 2025Q4

REPORT INFORMATION
  Report Type: Spontaneous
  Country: US (occurrence: None)
  Receive Date: 20251006
  Receipt Date: 20251006
  Transmission Date: 20260117
  Serious: Yes (Death)
  Sender: FDA-CTU
  Company Number: None

PATIENT
  Age: 43 Year
  Sex: Female
  Weight: 110.6 kg

DRUGS (1)
  1. TIVICAY [Suspect]
     Active Substance: DOLUTEGRAVIR SODIUM
     Indication: HIV infection
     Route: 048
     Dates: start: 20221129, end: 20250815

REACTIONS (2)
  - Myocardial infarction [None]
  - Disease complication [None]

NARRATIVE: CASE EVENT DATE: 20250815
